FAERS Safety Report 10228103 (Version 3)
Quarter: 2014Q3

REPORT INFORMATION
  Report Type: Spontaneous
  Country: JP (occurrence: JP)
  Receive Date: 20140610
  Receipt Date: 20140711
  Transmission Date: 20150326
  Serious: Yes (Other)
  Sender: FDA-Public Use
  Company Number: PHHY2014JP069658

PATIENT

DRUGS (1)
  1. APRESOLIN [Suspect]
     Active Substance: HYDRALAZINE HYDROCHLORIDE
     Route: 064

REACTIONS (3)
  - Heart sounds abnormal [Unknown]
  - Foetal exposure during pregnancy [Unknown]
  - Premature baby [Unknown]
